FAERS Safety Report 4723747-6 (Version None)
Quarter: 2005Q3

REPORT INFORMATION
  Report Type: 
  Country: None (occurrence: None)
  Receive Date: 20050720
  Receipt Date: 20050720
  Transmission Date: 20060218
  Serious: Yes (Hospitalization)
  Sender: FDA-Public Use
  Company Number: None

PATIENT
  Age: 74 Year
  Sex: Male

DRUGS (4)
  1. ALFUZOSIN [Suspect]
     Dosage: 10 MG PO QD
     Route: 048
  2. CARBIDOPA + LEVODOPA [Suspect]
     Dosage: 3 Q AM 2 AT NOON
  3. NORTRIPTYLINE HCL [Suspect]
     Dosage: 25MG PO Q HS
     Route: 048
  4. FENTANYL [Suspect]
     Dosage: 100 MG Q 72 HRS.

REACTIONS (1)
  - HYPOTENSION [None]
